FAERS Safety Report 14218272 (Version 4)
Quarter: 2018Q1

REPORT INFORMATION
  Report Type: Spontaneous
  Country: US (occurrence: US)
  Receive Date: 20171123
  Receipt Date: 20180208
  Transmission Date: 20180508
  Serious: Yes (Hospitalization, Other)
  Sender: FDA-Public Use
  Company Number: US-CLOVIS ONCOLOGY-CLO-2017-001356

PATIENT
  Age: 71 Year
  Sex: Female

DRUGS (3)
  1. RUBRACA [Suspect]
     Active Substance: RUCAPARIB CAMSYLATE
     Indication: OVARIAN CANCER
     Dosage: 600 MG BID
     Route: 048
     Dates: start: 20170802, end: 2017
  2. RUBRACA [Suspect]
     Active Substance: RUCAPARIB CAMSYLATE
     Dosage: 600 MG, BID
     Route: 048
     Dates: start: 20170816, end: 201712
  3. RUBRACA [Suspect]
     Active Substance: RUCAPARIB CAMSYLATE
     Dosage: 600 MG, BID
     Route: 048
     Dates: start: 2017, end: 2017

REACTIONS (11)
  - Brain neoplasm [Unknown]
  - Malignant neoplasm progression [Unknown]
  - Feeding disorder [Unknown]
  - Weight decreased [Unknown]
  - Amnesia [Unknown]
  - Dysphagia [Unknown]
  - Decreased appetite [Unknown]
  - Stomatitis [Unknown]
  - Cerebrovascular accident [Unknown]
  - Speech disorder [Unknown]
  - Asthenia [Unknown]

NARRATIVE: CASE EVENT DATE: 2017
